FAERS Safety Report 4933066-0 (Version None)
Quarter: 2006Q1

REPORT INFORMATION
  Report Type: 
  Country: None (occurrence: None)
  Receive Date: 20060302
  Receipt Date: 20060302
  Transmission Date: 20060701
  Serious: Yes (Life-Threatening, Other)
  Sender: FDA-Public Use
  Company Number: None

PATIENT
  Age: 56 Year
  Sex: Female
  Weight: 58.9676 kg

DRUGS (2)
  1. ALEVE [Suspect]
     Indication: INFLAMMATION
     Dosage: 2-4 TABS A DAY  1-2 TIMES A DAY PO
     Route: 048
     Dates: start: 20040901, end: 20050301
  2. ALEVE [Suspect]
     Indication: TENDON DISORDER
     Dosage: 2-4 TABS A DAY  1-2 TIMES A DAY PO
     Route: 048
     Dates: start: 20040901, end: 20050301

REACTIONS (1)
  - CHEST PAIN [None]
